FAERS Safety Report 19219352 (Version 1)
Quarter: 2021Q2

REPORT INFORMATION
  Report Type: Spontaneous
  Country: US (occurrence: US)
  Receive Date: 20210506
  Receipt Date: 20210506
  Transmission Date: 20210717
  Serious: Yes (Hospitalization)
  Sender: FDA-Public Use
  Company Number: US-ROCHE-2623971

PATIENT
  Age: 86 Year
  Sex: Male

DRUGS (6)
  1. METHYLPRED [Concomitant]
     Active Substance: METHYLPREDNISOLONE
  2. TORSEMIDE. [Concomitant]
     Active Substance: TORSEMIDE
  3. ONDANSETRON [Concomitant]
     Active Substance: ONDANSETRON
  4. PREDNISONE. [Concomitant]
     Active Substance: PREDNISONE
  5. METOLAZONE. [Concomitant]
     Active Substance: METOLAZONE
  6. ESBRIET [Suspect]
     Active Substance: PIRFENIDONE
     Indication: IDIOPATHIC PULMONARY FIBROSIS
     Route: 048
     Dates: start: 20171230

REACTIONS (2)
  - Malaise [Unknown]
  - Overdose [Unknown]

NARRATIVE: CASE EVENT DATE: 20200527
